FAERS Safety Report 7072949-5 (Version None)
Quarter: 2010Q4

REPORT INFORMATION
  Report Type: 
  Country: None (occurrence: None)
  Receive Date: 20101029
  Receipt Date: 20101018
  Transmission Date: 20110411
  Serious: Yes (Hospitalization)
  Sender: FDA-Public Use
  Company Number: JP-PFIZER INC-2010130570

PATIENT
  Age: 55 Year
  Sex: Male

DRUGS (1)
  1. TELMISARTAN [Suspect]

REACTIONS (1)
  - LIVER DISORDER [None]
